FAERS Safety Report 23944613 (Version 3)
Quarter: 2024Q2

REPORT INFORMATION
  Report Type: Report from Study
  Country: TR (occurrence: TR)
  Receive Date: 20240606
  Receipt Date: 20240622
  Transmission Date: 20240715
  Serious: Yes (Hospitalization)
  Sender: FDA-Public Use
  Company Number: TR-TEVA-VS-3206012

PATIENT
  Age: 13 Year
  Sex: Female

DRUGS (2)
  1. AMLODIPINE [Suspect]
     Active Substance: AMLODIPINE BESYLATE
     Indication: Suicide attempt
     Dosage: TOTAL DOSE OF 270MG
     Route: 048
  2. VALSARTAN [Suspect]
     Active Substance: VALSARTAN
     Indication: Suicide attempt
     Route: 048

REACTIONS (3)
  - Hypotension [Recovered/Resolved]
  - Toxicity to various agents [Unknown]
  - Intentional overdose [Unknown]
